FAERS Safety Report 20501975 (Version 3)
Quarter: 2022Q4

REPORT INFORMATION
  Report Type: Spontaneous
  Country: JO (occurrence: JO)
  Receive Date: 20220222
  Receipt Date: 20221110
  Transmission Date: 20230112
  Serious: Yes (Life-Threatening, Hospitalization, Other)
  Sender: FDA-Public Use
  Company Number: JO-MLMSERVICE-20220208-3365688-1

PATIENT
  Age: 21 Year
  Sex: Male

DRUGS (8)
  1. CYTARABINE [Suspect]
     Active Substance: CYTARABINE
     Indication: Precursor T-lymphoblastic lymphoma/leukaemia
     Dosage: 3 G OVER 2 H EVERY 12 H ON THE SECOND AND THIRD DAYS
     Route: 042
  2. METHOTREXATE SODIUM [Suspect]
     Active Substance: METHOTREXATE SODIUM
     Indication: Precursor T-lymphoblastic lymphoma/leukaemia
     Dosage: 200 MG OVER 2 H FOLLOWED BY 800 MG OVER THE NEXT 24 H ON THE FIRST DAY
     Route: 042
  3. METHOTREXATE SODIUM [Suspect]
     Active Substance: METHOTREXATE SODIUM
     Indication: Precursor T-lymphoblastic lymphoma/leukaemia
     Dosage: ON THE SECOND DAY
     Route: 039
  4. TEICOPLANIN [Concomitant]
     Active Substance: TEICOPLANIN
     Indication: Prophylaxis
     Dosage: 400 MG, FREQ:24 H;
     Route: 042
  5. LEUCOVORIN [Concomitant]
     Active Substance: LEUCOVORIN
     Indication: Precursor T-lymphoblastic lymphoma/leukaemia
     Dosage: 15 MG, EVERY 6 H
     Route: 042
  6. METHYLPREDNISOLONE [Concomitant]
     Active Substance: METHYLPREDNISOLONE
     Indication: Precursor T-lymphoblastic lymphoma/leukaemia
     Dosage: 50MG FROM DAY ONE TO THREE
     Route: 042
  7. GRANULOCYTE COLONY-STIMULATING FACTOR NOS [Concomitant]
     Active Substance: GRANULOCYTE COLONY-STIMULATING FACTOR NOS
     Indication: Prophylaxis
     Dosage: 5 UG/KG/H
     Route: 058
  8. MEROPENEM [Concomitant]
     Active Substance: MEROPENEM
     Indication: Prophylaxis
     Dosage: FREQ:8 H;
     Route: 042

REACTIONS (3)
  - White blood cell count decreased [Recovering/Resolving]
  - Normocytic anaemia [Recovering/Resolving]
  - Myelosuppression [Recovering/Resolving]
